APPROVED DRUG PRODUCT: OXYCODONE HYDROCHLORIDE
Active Ingredient: OXYCODONE HYDROCHLORIDE
Strength: 100MG/5ML
Dosage Form/Route: SOLUTION;ORAL
Application: A204085 | Product #001
Applicant: CHARTWELL MOLECULAR HOLDINGS LLC
Approved: Sep 9, 2014 | RLD: No | RS: No | Type: DISCN